FAERS Safety Report 6338422-4 (Version None)
Quarter: 2009Q3

REPORT INFORMATION
  Report Type: 
  Country: None (occurrence: None)
  Receive Date: 20090902
  Receipt Date: 20090819
  Transmission Date: 20100115
  Serious: Yes (Disabling)
  Sender: FDA-Public Use
  Company Number: GB-MERCK-0908GBR00064

PATIENT
  Age: 65 Year
  Sex: Female
  Weight: 92 kg

DRUGS (14)
  1. ZOCOR [Suspect]
     Route: 048
  2. JANUVIA [Suspect]
     Indication: DIABETES MELLITUS
     Route: 048
     Dates: start: 20080812, end: 20090518
  3. ASPIRIN [Concomitant]
     Route: 048
  4. BENDROFLUMETHIAZIDE [Concomitant]
     Route: 048
  5. BUPRENORPHINE [Concomitant]
     Route: 061
  6. DIPYRIDAMOLE [Concomitant]
     Route: 048
  7. VASOTEC [Concomitant]
     Route: 048
  8. MINERAL OIL AND PETROLATUM, WHITE [Concomitant]
     Route: 047
  9. INSULIN GLARGINE [Concomitant]
     Route: 065
  10. METFORMIN HYDROCHLORIDE [Concomitant]
     Indication: DIABETES MELLITUS
     Route: 048
  11. OXYTETRACYCLINE [Concomitant]
     Route: 048
  12. ACETAMINOPHEN [Concomitant]
     Route: 048
  13. PRAVASTATIN SODIUM [Concomitant]
     Indication: HYPERCHOLESTEROLAEMIA
     Route: 048
  14. POLYVINYL ALCOHOL [Concomitant]
     Route: 047

REACTIONS (10)
  - ARTHRALGIA [None]
  - INTRAOCULAR PRESSURE DECREASED [None]
  - LACRIMATION DECREASED [None]
  - MALAISE [None]
  - MEIBOMIANITIS [None]
  - MYALGIA [None]
  - NAUSEA [None]
  - RETINAL EXUDATES [None]
  - RETINAL HAEMORRHAGE [None]
  - VISION BLURRED [None]
